FAERS Safety Report 25652160 (Version 8)
Quarter: 2025Q4

REPORT INFORMATION
  Report Type: Report from Study
  Country: EU (occurrence: EU)
  Receive Date: 20250806
  Receipt Date: 20251201
  Transmission Date: 20260118
  Serious: Yes (Hospitalization)
  Sender: ABBVIE
  Company Number: EU-ABBVIE-6403048

PATIENT
  Age: 71 Year
  Sex: Male

DRUGS (5)
  1. FOSCARBIDOPA\FOSLEVODOPA [Suspect]
     Active Substance: FOSCARBIDOPA\FOSLEVODOPA
     Indication: Parkinson^s disease
     Dosage: (SD: 0.60 ML), CRN: 0.58 ML/H, CR: 0.64 ML/H, CRH:0.66 ML/H, ED: 0.30 ML?LAST ADMIN DATE-2025
     Route: 058
     Dates: start: 20250602
  2. FOSCARBIDOPA\FOSLEVODOPA [Suspect]
     Active Substance: FOSCARBIDOPA\FOSLEVODOPA
     Dosage: (SD: 0.70 ML), CRL: 0.58 ML/H, CR: 0.66 ML/H, CRH: 0.70 ML/H, ED: 0.33 ML?FIRST AND LAST ADMIN DA...
     Route: 058
  3. FOSCARBIDOPA\FOSLEVODOPA [Suspect]
     Active Substance: FOSCARBIDOPA\FOSLEVODOPA
     Dosage: SD: 0.60 ML, CRN: 0.58 ML/H, CR: 0.64 ML/H, CRH: 0.66 ML/H, ED: 0.30 ML.?FIRST ADMIN DATE-2025?LA...
     Route: 058
  4. FOSCARBIDOPA\FOSLEVODOPA [Suspect]
     Active Substance: FOSCARBIDOPA\FOSLEVODOPA
     Dosage: DOSAGES: SD: 0.60ML, CRN: 0.58 ML/H, CR: 0.66 ML/H, CRH: 0.68 ML/H, ED: 0.30 ML. ?FIRST AND LAST ...
     Route: 058
  5. FOSCARBIDOPA\FOSLEVODOPA [Suspect]
     Active Substance: FOSCARBIDOPA\FOSLEVODOPA
     Dosage: SD: 0.60 ML, CRN: 0.58 ML/H, CR: 0.66 ML/H, CRH: 0.70 ML/H, ED: 0.30 ML?FIRST ADMIN DATE 2025
     Route: 058

REACTIONS (9)
  - Inguinal hernia [Not Recovered/Not Resolved]
  - Incoherent [Unknown]
  - Procedural complication [Not Recovered/Not Resolved]
  - Akinesia [Unknown]
  - Dyskinesia [Not Recovered/Not Resolved]
  - Condition aggravated [Unknown]
  - Colectomy [Not Recovered/Not Resolved]
  - Weight decreased [Not Recovered/Not Resolved]
  - Hypokinesia [Recovering/Resolving]

NARRATIVE: CASE EVENT DATE: 20250101
